FAERS Safety Report 6227571-7 (Version None)
Quarter: 2009Q2

REPORT INFORMATION
  Report Type: 
  Country: None (occurrence: None)
  Receive Date: 20090612
  Receipt Date: 20090602
  Transmission Date: 20091009
  Serious: Yes (Hospitalization)
  Sender: FDA-Public Use
  Company Number: US-BIOGENIDEC-2007BI017050

PATIENT
  Age: 57 Year
  Sex: Male

DRUGS (3)
  1. AVONEX [Suspect]
     Indication: MULTIPLE SCLEROSIS
     Route: 030
     Dates: start: 20031101, end: 20061001
  2. AVONEX [Suspect]
     Route: 030
     Dates: start: 20080401, end: 20080801
  3. AVONEX [Suspect]
     Route: 030
     Dates: start: 20090501

REACTIONS (3)
  - HEART VALVE STENOSIS [None]
  - MYOCARDIAL INFARCTION [None]
  - PROCEDURAL PAIN [None]
